FAERS Safety Report 13163381 (Version 1)
Quarter: 2017Q1

REPORT INFORMATION
  Report Type: Spontaneous
  Country: US (occurrence: US)
  Receive Date: 20170124
  Receipt Date: 20170124
  Transmission Date: 20170428
  Serious: Yes (Other)
  Sender: FDA-Public Use
  Company Number: None

PATIENT
  Age: 56 Year
  Sex: Female
  Weight: 81 kg

DRUGS (1)
  1. NYSTATIN TRIAMCINOLONE ACETONIDE [Suspect]
     Active Substance: NYSTATIN\TRIAMCINOLONE ACETONIDE
     Indication: VULVOVAGINAL PRURITUS
     Dosage: TOPICAL 1 DAB AS NEEDED?
     Route: 061
     Dates: start: 20151001, end: 20151201

REACTIONS (2)
  - Endometrial hypertrophy [None]
  - Vaginal haemorrhage [None]

NARRATIVE: CASE EVENT DATE: 20160201
